FAERS Safety Report 8298278-X (Version None)
Quarter: 2012Q2

REPORT INFORMATION
  Report Type: 
  Country: None (occurrence: None)
  Receive Date: 20120419
  Receipt Date: 20120312
  Transmission Date: 20120825
  Serious: No
  Sender: FDA-Public Use
  Company Number: US-BRISTOL-MYERS SQUIBB COMPANY-16359747

PATIENT
  Age: 66 Year
  Sex: Male

DRUGS (1)
  1. YERVOY [Suspect]
     Indication: METASTATIC MALIGNANT MELANOMA
     Dosage: DOSE:358MG AND 353MG THERAPY DATES:02JUN2011 AND 06JUL2011
     Route: 042
     Dates: start: 20110512, end: 20110706

REACTIONS (1)
  - ADVERSE EVENT [None]
